FAERS Safety Report 25488061 (Version 3)
Quarter: 2025Q3

REPORT INFORMATION
  Report Type: Spontaneous
  Country: EU (occurrence: EU)
  Receive Date: 20250627
  Receipt Date: 20250731
  Transmission Date: 20251020
  Serious: Yes (Hospitalization, Other)
  Sender: BAYER HEALTHCARE PHARMACEUTICALS INC.
  Company Number: EU-BAYER-2025A083158

PATIENT
  Age: 32 Year
  Sex: Female

DRUGS (8)
  1. MOXIFLOXACIN [Suspect]
     Active Substance: MOXIFLOXACIN
     Indication: Photophobia
  2. MOXIFLOXACIN [Suspect]
     Active Substance: MOXIFLOXACIN
     Indication: Eye pain
  3. MOXIFLOXACIN [Suspect]
     Active Substance: MOXIFLOXACIN
     Indication: Lacrimation increased
  4. MOXIFLOXACIN [Suspect]
     Active Substance: MOXIFLOXACIN
     Indication: Headache
  5. MOXIFLOXACIN [Suspect]
     Active Substance: MOXIFLOXACIN
     Indication: Retinitis
  6. MOXIFLOXACIN [Suspect]
     Active Substance: MOXIFLOXACIN
     Indication: HIV infection
  7. ACYCLOVIR [Concomitant]
     Active Substance: ACYCLOVIR
     Indication: Retinitis
  8. ACYCLOVIR [Concomitant]
     Active Substance: ACYCLOVIR
     Indication: HIV infection

REACTIONS (11)
  - Drug ineffective [Recovered/Resolved]
  - HIV infection [None]
  - Blindness [None]
  - Cytomegalovirus chorioretinitis [None]
  - Retinal vasculitis [None]
  - Uveitis [None]
  - Iridocyclitis [None]
  - Retinal detachment [None]
  - Vision blurred [None]
  - Product use in unapproved indication [None]
  - Product prescribing issue [None]

NARRATIVE: CASE EVENT DATE: 20240101
